FAERS Safety Report 13831314 (Version 1)
Quarter: 2017Q3

REPORT INFORMATION
  Report Type: Spontaneous
  Country: IN (occurrence: IN)
  Receive Date: 20170803
  Receipt Date: 20170803
  Transmission Date: 20171127
  Serious: Yes (Life-Threatening, Hospitalization)
  Sender: FDA-Public Use
  Company Number: IN-ALLERGAN-1732402US

PATIENT
  Age: 32 Year
  Sex: Male

DRUGS (2)
  1. ASENAPINE MALEATE - BP [Suspect]
     Active Substance: ASENAPINE MALEATE
     Dosage: UNK, UNKNOWN
     Route: 065
  2. ASENAPINE MALEATE - BP [Suspect]
     Active Substance: ASENAPINE MALEATE
     Indication: BIPOLAR DISORDER RELAPSE PROPHYLAXIS
     Dosage: 50 MG, UNK
     Route: 048

REACTIONS (4)
  - Intentional overdose [Unknown]
  - Incorrect route of drug administration [Unknown]
  - Neuroleptic malignant syndrome [Unknown]
  - Suicide attempt [Unknown]
